FAERS Safety Report 11630721 (Version 5)
Quarter: 2018Q1

REPORT INFORMATION
  Report Type: Report from Study
  Country: DE (occurrence: DE)
  Receive Date: 20151014
  Receipt Date: 20180109
  Transmission Date: 20180508
  Serious: Yes (Other)
  Sender: FDA-Public Use
  Company Number: DE-BAYER-2015-441567

PATIENT

DRUGS (9)
  1. LIPROLOG [Concomitant]
     Active Substance: INSULIN LISPRO
     Dosage: UNK
  2. ALLOPURINOL RATIOPHARM [Concomitant]
     Dosage: 100 MG, QD
  3. HYDROCHLOROTHIAZID [Concomitant]
     Active Substance: HYDROCHLOROTHIAZIDE
     Dosage: 25 MG, QD
  4. METFORMIN [Concomitant]
     Active Substance: METFORMIN HYDROCHLORIDE
     Dosage: 850 MG, BID
  5. ACETYLSALICYLIC ACID({=100 MG) [Suspect]
     Active Substance: ASPIRIN
     Dosage: 100 MG, QD
  6. BISOHEXAL [Concomitant]
     Active Substance: BISOPROLOL FUMARATE
     Dosage: 5 MG, QD
  7. SIMVAHEXAL [Concomitant]
     Active Substance: SIMVASTATIN
     Dosage: 40 MG, QD
  8. CANDESARTAN. [Concomitant]
     Active Substance: CANDESARTAN
     Dosage: 10 MG, QD
  9. LANTUS [Concomitant]
     Active Substance: INSULIN GLARGINE
     Dosage: 36 IU, QD

REACTIONS (1)
  - Ischaemic cerebral infarction [None]

NARRATIVE: CASE EVENT DATE: 20150705
